FAERS Safety Report 7742865-1 (Version None)
Quarter: 2011Q3

REPORT INFORMATION
  Report Type: 
  Country: None (occurrence: None)
  Receive Date: 20110912
  Receipt Date: 20110906
  Transmission Date: 20111222
  Serious: Yes (Death)
  Sender: FDA-Public Use
  Company Number: SE-ASTRAZENECA-2011SE53798

PATIENT

DRUGS (1)
  1. MEROPENEM [Suspect]
     Indication: POST PROCEDURAL INFECTION
     Route: 042

REACTIONS (1)
  - CONVULSION [None]
